FAERS Safety Report 21264986 (Version 1)
Quarter: 2022Q3

REPORT INFORMATION
  Report Type: Spontaneous
  Country: US (occurrence: US)
  Receive Date: 20220829
  Receipt Date: 20220829
  Transmission Date: 20221027
  Serious: Yes (Other)
  Sender: FDA-Public Use
  Company Number: US-MICRO LABS LIMITED-ML2022-04281

PATIENT
  Age: 8 Decade
  Sex: Female

DRUGS (4)
  1. LEVOFLOXACIN [Suspect]
     Active Substance: LEVOFLOXACIN
     Indication: Pseudomonas infection
     Route: 048
  2. LEVOFLOXACIN [Suspect]
     Active Substance: LEVOFLOXACIN
     Indication: Escherichia bacteraemia
  3. PREDNISONE [Suspect]
     Active Substance: PREDNISONE
     Indication: Myositis
     Dosage: 40 MG DAILY FOR APPROXIMATELY 2 MONTHS
  4. PREDNISONE [Suspect]
     Active Substance: PREDNISONE
     Dosage: TAPER

REACTIONS (1)
  - Oesophageal candidiasis [Recovered/Resolved]
